FAERS Safety Report 7789974-9 (Version None)
Quarter: 2011Q3

REPORT INFORMATION
  Report Type: 
  Country: None (occurrence: None)
  Receive Date: 20110930
  Receipt Date: 20101007
  Transmission Date: 20111222
  Serious: Yes (Other)
  Sender: FDA-Public Use
  Company Number: US-ASTRAZENECA-2010SE47791

PATIENT
  Age: 64 Year
  Sex: Female

DRUGS (3)
  1. ARIMIDEX [Suspect]
     Indication: BREAST CANCER
     Route: 048
  2. RADIOTHERAPY [Concomitant]
     Dosage: EXTERNAL BEAM RADIATION AT A DOSE 4500 CGY
  3. RADIOTHERAPY [Concomitant]
     Indication: BREAST CANCER
     Dosage: TWO TREATMENTS PER DAY FOR 5 DAYS (10 FRACTIONS) FOR A TOTAL DOSE OF 3400 CGY

REACTIONS (1)
  - OSTEOPOROSIS [None]
